FAERS Safety Report 13800689 (Version 1)
Quarter: 2017Q3

REPORT INFORMATION
  Report Type: Spontaneous
  Country: FR (occurrence: FR)
  Receive Date: 20170727
  Receipt Date: 20170727
  Transmission Date: 20171127
  Serious: Yes (Hospitalization)
  Sender: FDA-Public Use
  Company Number: FR-PFIZER INC-2017318649

PATIENT
  Age: 70 Year
  Sex: Male

DRUGS (10)
  1. PANTOPRAZOLE [Concomitant]
     Active Substance: PANTOPRAZOLE
  2. SITAGLIPTIN [Concomitant]
     Active Substance: SITAGLIPTIN
  3. NEBIVOLOL. [Concomitant]
     Active Substance: NEBIVOLOL
  4. LERCANIDIPINE [Concomitant]
     Active Substance: LERCANIDIPINE
  5. TAHOR [Suspect]
     Active Substance: ATORVASTATIN CALCIUM
     Indication: CARDIOVASCULAR EVENT PROPHYLAXIS
     Dosage: 80 MG, DAILY
     Route: 048
     Dates: start: 20170504, end: 20170524
  6. METFORMIN [Concomitant]
     Active Substance: METFORMIN HYDROCHLORIDE
     Dosage: 2000 MG, DAILY
     Dates: start: 2012, end: 20170526
  7. ENALAPRIL [Concomitant]
     Active Substance: ENALAPRIL
  8. ALFUZOSIN [Concomitant]
     Active Substance: ALFUZOSIN
  9. FLUOXETINE [Suspect]
     Active Substance: FLUOXETINE HYDROCHLORIDE
     Indication: DEPRESSION
     Dosage: 20 MG, DAILY
     Route: 048
     Dates: start: 20170516, end: 20170529
  10. GLICLAZIDE [Concomitant]
     Active Substance: GLICLAZIDE

REACTIONS (3)
  - Cholestasis [Recovering/Resolving]
  - Jaundice [Recovered/Resolved]
  - Hepatocellular injury [Recovered/Resolved]

NARRATIVE: CASE EVENT DATE: 20170522
